FAERS Safety Report 8864345 (Version 1)
Quarter: 2012Q4

REPORT INFORMATION
  Report Type: 
  Country: US (occurrence: US)
  Receive Date: 20121024
  Receipt Date: 20121024
  Transmission Date: 20130627
  Serious: Yes (Hospitalization)
  Sender: FDA-Public Use
  Company Number: US-AMGEN-USASP2011066993

PATIENT
  Age: 79 Year
  Sex: Female
  Weight: 104.31 kg

DRUGS (16)
  1. ENBREL [Suspect]
     Indication: PSORIATIC ARTHROPATHY
     Dosage: 50 mg, qwk
     Route: 058
  2. EVISTA [Concomitant]
     Dosage: 60 mg, UNK
  3. HYZAAR [Concomitant]
  4. CODEINE SULFATE [Concomitant]
     Dosage: 15 mg, UNK
  5. SIMVASTATIN [Concomitant]
     Dosage: 5 mg, UNK
  6. CHLOROQUINE [Concomitant]
     Dosage: 250 mg, UNK
  7. NOVOLOG MIX [Concomitant]
  8. ALBUTEROL [Concomitant]
     Dosage: 0.083 %, UNK
  9. FLONASE [Concomitant]
     Dosage: 0.05 %, UNK
  10. VITAMIN C [Concomitant]
     Dosage: 500 mg, UNK
  11. LEVOTHYROXINE [Concomitant]
     Dosage: 88 mug, UNK
  12. CYCLOBENZAPRINE [Concomitant]
     Dosage: 5 mg, UNK
  13. MULTIVITAMIN AND MINERAL [Concomitant]
  14. VITAMIN D3 [Concomitant]
     Dosage: 5000 IU, UNK
  15. ALLERGY [Concomitant]
     Dosage: 25 mg, UNK
  16. CALCIUM AND VITAMIN D [Concomitant]

REACTIONS (3)
  - Colitis ulcerative [Unknown]
  - Upper limb fracture [Unknown]
  - Drug ineffective [Unknown]
